FAERS Safety Report 5410776-2 (Version None)
Quarter: 2007Q3

REPORT INFORMATION
  Report Type: 
  Country: None (occurrence: None)
  Receive Date: 20070810
  Receipt Date: 20070409
  Transmission Date: 20080115
  Serious: No
  Sender: FDA-Public Use
  Company Number: A0646279A

PATIENT
  Age: 64 Year
  Sex: Male

DRUGS (14)
  1. PAXIL CR [Suspect]
     Indication: DEPRESSION
     Dosage: 37.5MG PER DAY
     Route: 048
     Dates: start: 20020101
  2. LANTUS [Concomitant]
  3. CLOPIDOGREL [Concomitant]
  4. LYRICA [Concomitant]
  5. NEXIUM [Concomitant]
  6. ECOTRIN [Concomitant]
  7. ENALAPRIL MALEATE [Concomitant]
  8. METOPROLOL SUCCINATE [Concomitant]
  9. GLUCOVANCE [Concomitant]
  10. ACTOS [Concomitant]
  11. VYTORIN [Concomitant]
  12. PULMICORT [Concomitant]
  13. SPIRIVA [Concomitant]
  14. BYETTA [Concomitant]

REACTIONS (2)
  - DRUG INEFFECTIVE [None]
  - PHARMACEUTICAL PRODUCT COMPLAINT [None]
